FAERS Safety Report 6678671-9 (Version None)
Quarter: 2010Q2

REPORT INFORMATION
  Report Type: 
  Country: None (occurrence: None)
  Receive Date: 20100413
  Receipt Date: 20100407
  Transmission Date: 20101027
  Serious: Yes (Hospitalization)
  Sender: FDA-Public Use
  Company Number: DE-PFIZER INC-2010010692

PATIENT
  Age: 45 Year
  Sex: Female
  Weight: 77 kg

DRUGS (6)
  1. REVATIO [Suspect]
     Indication: PULMONARY ARTERIAL HYPERTENSION
     Dosage: UNK
     Route: 048
     Dates: start: 20090101, end: 20090101
  2. AMBRISENTAN [Suspect]
     Indication: VENOOCCLUSIVE DISEASE
     Dosage: 5 MG/DAY
     Route: 048
     Dates: start: 20090623, end: 20090630
  3. ILOPROST [Concomitant]
     Indication: PULMONARY ARTERIAL HYPERTENSION
     Dosage: UNK
     Route: 055
  4. LEVOTHYROXINE SODIUM [Concomitant]
     Dosage: UNK
  5. TORSEMIDE [Concomitant]
     Dosage: UNK
  6. PENTAERYTHRITOL TETRANITRATE [Concomitant]
     Dosage: UNK

REACTIONS (12)
  - BRAIN NATRIURETIC PEPTIDE INCREASED [None]
  - CARDIOMEGALY [None]
  - EJECTION FRACTION DECREASED [None]
  - HYPOCHROMIC ANAEMIA [None]
  - IRON DEFICIENCY ANAEMIA [None]
  - PERICARDIAL EFFUSION [None]
  - PLEURAL EFFUSION [None]
  - PULMONARY ALVEOLAR HAEMORRHAGE [None]
  - PULMONARY ARTERIAL HYPERTENSION [None]
  - PULMONARY CONGESTION [None]
  - PULMONARY VENO-OCCLUSIVE DISEASE [None]
  - RIGHT VENTRICULAR HYPERTROPHY [None]
